FAERS Safety Report 13716384 (Version 2)
Quarter: 2017Q3

REPORT INFORMATION
  Report Type: Spontaneous
  Country: PL (occurrence: PL)
  Receive Date: 20170705
  Receipt Date: 20170808
  Transmission Date: 20171127
  Serious: Yes (Life-Threatening, Other)
  Sender: FDA-Public Use
  Company Number: PL-SUN PHARMACEUTICAL INDUSTRIES LTD-2017R1-144773

PATIENT
  Age: 80 Year
  Sex: Male

DRUGS (3)
  1. METHYLPREDNISOLONE. [Suspect]
     Active Substance: METHYLPREDNISOLONE
     Indication: ANTI-NEUTROPHIL CYTOPLASMIC ANTIBODY POSITIVE VASCULITIS
     Dosage: 3X1.0 G IV
     Route: 042
  2. PREDNISONE. [Suspect]
     Active Substance: PREDNISONE
     Indication: ANTI-NEUTROPHIL CYTOPLASMIC ANTIBODY POSITIVE VASCULITIS
     Dosage: 60 MG, DAILY
     Route: 065
  3. CYCLOPHOSPHAMIDE. [Suspect]
     Active Substance: CYCLOPHOSPHAMIDE
     Indication: ANTI-NEUTROPHIL CYTOPLASMIC ANTIBODY POSITIVE VASCULITIS
     Dosage: PULSES , 10 MG/KG DOSE REDUCED; TOTAL DOSE, 2.4 G IV
     Route: 042

REACTIONS (6)
  - Candida infection [Unknown]
  - Aspergillus infection [Recovering/Resolving]
  - Tongue fungal infection [Unknown]
  - Drug ineffective [Unknown]
  - Herpes zoster [Unknown]
  - Lymphopenia [Unknown]
